FAERS Safety Report 6956335-1 (Version None)
Quarter: 2010Q3

REPORT INFORMATION
  Report Type: 
  Country: None (occurrence: None)
  Receive Date: 20100830
  Receipt Date: 20100820
  Transmission Date: 20110219
  Serious: Yes (Other)
  Sender: FDA-Public Use
  Company Number: A0837817A

PATIENT
  Age: 55 Year
  Sex: Male

DRUGS (1)
  1. ROSIGLITAZONE [Suspect]
     Route: 048
     Dates: end: 20070101

REACTIONS (1)
  - HEPATIC FAILURE [None]
